FAERS Safety Report 18492220 (Version 12)
Quarter: 2021Q2

REPORT INFORMATION
  Report Type: Report from Study
  Country: CO (occurrence: CO)
  Receive Date: 20201111
  Receipt Date: 20210608
  Transmission Date: 20210717
  Serious: Yes (Life-Threatening, Hospitalization, Other)
  Sender: FDA-Public Use
  Company Number: NVSC2020CO298045

PATIENT
  Age: 63 Year
  Sex: Female
  Weight: 54 kg

DRUGS (7)
  1. REVOLADE [Suspect]
     Active Substance: ELTROMBOPAG OLAMINE
     Dosage: 50 MG, TID (150 MG, 3 TIMES DAY)
     Route: 048
     Dates: start: 20201121
  2. PREDNISOLONE. [Concomitant]
     Active Substance: PREDNISOLONE
     Dosage: 10 MG, QD
     Route: 048
     Dates: end: 2020
  3. FOLIC ACID. [Concomitant]
     Active Substance: FOLIC ACID
     Dosage: 5 MG, QD
     Route: 048
     Dates: end: 2020
  4. CALCIUM [Concomitant]
     Active Substance: CALCIUM
     Indication: PRODUCT USED FOR UNKNOWN INDICATION
     Dosage: UNK UNK, Q24H (STARTED FROM APPROXIMATELY ONE MONTH AGO)
     Route: 048
  5. PREDNISOLONE. [Concomitant]
     Active Substance: PREDNISOLONE
     Indication: IMMUNE THROMBOCYTOPENIA
     Dosage: 25 MG, QD
     Route: 048
  6. FOLIC ACID. [Concomitant]
     Active Substance: FOLIC ACID
     Indication: IMMUNE THROMBOCYTOPENIA
     Dosage: 5 MG, Q24H
     Route: 048
  7. REVOLADE [Suspect]
     Active Substance: ELTROMBOPAG OLAMINE
     Indication: IMMUNE THROMBOCYTOPENIA
     Dosage: 50 MG, Q12H (STARTED FROM APPROXIMATELY ONE MONTH AGO)
     Route: 048
     Dates: start: 20201102, end: 20201120

REACTIONS (19)
  - Tachycardia [Unknown]
  - Pain in extremity [Recovered/Resolved]
  - Haematoma [Unknown]
  - Mouth haemorrhage [Recovered/Resolved]
  - Arthralgia [Unknown]
  - Contusion [Recovering/Resolving]
  - Somnolence [Recovered/Resolved]
  - Diarrhoea [Recovering/Resolving]
  - Chest pain [Recovered/Resolved]
  - Anaemia [Not Recovered/Not Resolved]
  - Thrombosis [Recovering/Resolving]
  - Malaise [Recovered/Resolved]
  - Discouragement [Unknown]
  - Myalgia [Unknown]
  - Pain [Unknown]
  - Depressed mood [Unknown]
  - Platelet count decreased [Unknown]
  - Product prescribing error [Unknown]
  - Inappropriate schedule of product administration [Unknown]

NARRATIVE: CASE EVENT DATE: 20201102
